FAERS Safety Report 8530616-2 (Version None)
Quarter: 2012Q3

REPORT INFORMATION
  Report Type: 
  Country: None (occurrence: None)
  Receive Date: 20120723
  Receipt Date: 20120716
  Transmission Date: 20120928
  Serious: Yes (Other)
  Sender: FDA-Public Use
  Company Number: HR-ROCHE-1014771

PATIENT

DRUGS (2)
  1. ALTEPLASE [Suspect]
     Indication: INTRAVENTRICULAR HAEMORRHAGE
  2. SUFENTANIL CITRATE [Concomitant]

REACTIONS (1)
  - HYPERTENSION [None]
